FAERS Safety Report 5606396-7 (Version None)
Quarter: 2008Q1

REPORT INFORMATION
  Report Type: 
  Country: None (occurrence: None)
  Receive Date: 20080129
  Receipt Date: 20070911
  Transmission Date: 20080703
  Serious: No
  Sender: FDA-Public Use
  Company Number: A0681558A

PATIENT
  Age: 52 Year
  Sex: Female

DRUGS (5)
  1. WELLBUTRIN [Suspect]
     Indication: DRUG USE FOR UNKNOWN INDICATION
     Route: 065
     Dates: start: 20070805
  2. EQUATE NICOTINE PATCH [Suspect]
     Indication: SMOKING CESSATION THERAPY
     Dosage: 1PAT PER DAY
     Route: 062
     Dates: start: 20070805
  3. PREMARIN [Concomitant]
  4. DIOVAN [Concomitant]
  5. PAXIL [Concomitant]

REACTIONS (2)
  - FEELING ABNORMAL [None]
  - INTENTIONAL DRUG MISUSE [None]
